FAERS Safety Report 4406240-X (Version None)
Quarter: 2004Q3

REPORT INFORMATION
  Report Type: 
  Country: None (occurrence: None)
  Receive Date: 20040723
  Receipt Date: 20021218
  Transmission Date: 20050211
  Serious: No
  Sender: FDA-Public Use
  Company Number: US-GLAXOSMITHKLINE-A0389855A

PATIENT
  Age: 66 Year
  Sex: Male

DRUGS (5)
  1. AVANDIA [Suspect]
     Dosage: 6MG TWICE PER DAY
     Route: 048
     Dates: start: 20000101
  2. LISINOPRIL [Concomitant]
  3. SIMVASTATIN [Concomitant]
  4. ASPIRIN [Concomitant]
  5. GLYBURIDE [Concomitant]

REACTIONS (3)
  - JOINT INJURY [None]
  - JOINT SWELLING [None]
  - PRESCRIBED OVERDOSE [None]
